FAERS Safety Report 19903690 (Version 2)
Quarter: 2022Q3

REPORT INFORMATION
  Report Type: Other
  Country: US (occurrence: None)
  Receive Date: 20211001
  Receipt Date: 20220823
  Transmission Date: 20221027
  Serious: Yes (Hospitalization)
  Sender: FDA-Public Use
  Company Number: US-ROCHE-2920347

PATIENT
  Sex: Male

DRUGS (1)
  1. OCREVUS [Suspect]
     Active Substance: OCRELIZUMAB
     Indication: Primary progressive multiple sclerosis
     Dosage: INFUSE 300MG TWO WEEKS APART, THEN INFUSE 600 MG EVERY SIX MONTHS, DATE OF TREATMENT: 29/JUL/2020, 2
     Route: 042
     Dates: start: 20200729

REACTIONS (1)
  - Infected skin ulcer [Not Recovered/Not Resolved]
